FAERS Safety Report 23134462 (Version 1)
Quarter: 2023Q4

REPORT INFORMATION
  Report Type: Report from Study
  Country: US (occurrence: US)
  Receive Date: 20231101
  Receipt Date: 20231101
  Transmission Date: 20240109
  Serious: Yes (Hospitalization, Other)
  Sender: FDA-Public Use
  Company Number: US-ABBVIE-4277468

PATIENT
  Sex: Female

DRUGS (1)
  1. SKYRIZI [Suspect]
     Active Substance: RISANKIZUMAB-RZAA
     Indication: Crohn^s disease
     Route: 042
     Dates: start: 20220128

REACTIONS (5)
  - Crohn^s disease [Recovering/Resolving]
  - Obstruction [Unknown]
  - Dehydration [Unknown]
  - Injection related reaction [Unknown]
  - Illness [Unknown]

NARRATIVE: CASE EVENT DATE: 20220101
